FAERS Safety Report 24312108 (Version 1)
Quarter: 2024Q3

REPORT INFORMATION
  Report Type: Spontaneous
  Country: US (occurrence: US)
  Receive Date: 20240912
  Receipt Date: 20240912
  Transmission Date: 20241017
  Serious: No
  Sender: DR REDDYS
  Company Number: US-DRL-USA-SPO/USA/24/0013094

PATIENT
  Age: 65 Year

DRUGS (7)
  1. DONEPEZIL [Suspect]
     Active Substance: DONEPEZIL\DONEPEZIL HYDROCHLORIDE
     Indication: Product used for unknown indication
  2. DIAZEPAM [Concomitant]
     Active Substance: DIAZEPAM
     Indication: Anticoagulant therapy
  3. NORDAZEPAM [Concomitant]
     Active Substance: NORDAZEPAM
     Indication: Anticoagulant therapy
  4. DULOXETINE [Concomitant]
     Active Substance: DULOXETINE
     Indication: Anticoagulant therapy
  5. MEMANTINE [Concomitant]
     Active Substance: MEMANTINE
     Indication: Anticoagulant therapy
  6. TRAMADOL [Concomitant]
     Active Substance: TRAMADOL\TRAMADOL HYDROCHLORIDE
     Indication: Anticoagulant therapy
  7. BUTALBITAL [Concomitant]
     Active Substance: BUTALBITAL
     Indication: Anticoagulant therapy

REACTIONS (1)
  - Drug level increased [Unknown]
